FAERS Safety Report 7458098-2 (Version None)
Quarter: 2011Q2

REPORT INFORMATION
  Report Type: 
  Country: None (occurrence: None)
  Receive Date: 20110503
  Receipt Date: 20110503
  Transmission Date: 20111010
  Serious: Yes (Hospitalization)
  Sender: FDA-Public Use
  Company Number: None

PATIENT
  Age: 58 Year
  Sex: Male
  Weight: 76 kg

DRUGS (2)
  1. CLONAZEPAM [Suspect]
     Indication: PAIN
     Dosage: 0.5 MG BID PO
     Route: 048
     Dates: start: 20030708, end: 20110423
  2. ZOLPIDEM [Suspect]
     Indication: SOMNOLENCE
     Dosage: 10 MG HS PO
     Route: 048
     Dates: start: 20081006, end: 20110423

REACTIONS (1)
  - HYPOTENSION [None]
